FAERS Safety Report 4709155-2 (Version None)
Quarter: 2005Q3

REPORT INFORMATION
  Report Type: 
  Country: None (occurrence: None)
  Receive Date: 20050706
  Receipt Date: 20050202
  Transmission Date: 20060218
  Serious: Yes (Hospitalization, Other)
  Sender: FDA-Public Use
  Company Number: 2005024855

PATIENT
  Age: 51 Year
  Sex: Male

DRUGS (3)
  1. TIKOSYN [Suspect]
     Indication: ILL-DEFINED DISORDER
  2. ALLOPURINOL [Concomitant]
  3. METOPROLOL TARTRATE [Concomitant]

REACTIONS (1)
  - INFECTION [None]
